FAERS Safety Report 5950652-X (Version None)
Quarter: 2008Q4

REPORT INFORMATION
  Report Type: 
  Country: None (occurrence: None)
  Receive Date: 20081022
  Receipt Date: 20080623
  Transmission Date: 20090506
  Serious: No
  Sender: FDA-Public Use
  Company Number: ALL1-2008-01594

PATIENT
  Age: 14 Year
  Sex: Female
  Weight: 72.6 kg

DRUGS (5)
  1. VYVANSE [Suspect]
     Indication: ATTENTION DEFICIT/HYPERACTIVITY DISORDER
     Dosage: 30 MG,1X/DAY:QD,ORAL; 50 MG,1X/DAY:QD,ORAL
     Route: 048
     Dates: start: 20080101, end: 20080401
  2. VYVANSE [Suspect]
     Indication: ATTENTION DEFICIT/HYPERACTIVITY DISORDER
     Dosage: 30 MG,1X/DAY:QD,ORAL; 50 MG,1X/DAY:QD,ORAL
     Route: 048
     Dates: start: 20080401
  3. TOPAMAX [Concomitant]
  4. ZOLOFT [Concomitant]
  5. LAMICTAL [Concomitant]

REACTIONS (3)
  - DEPRESSED MOOD [None]
  - DRUG INEFFECTIVE [None]
  - OFF LABEL USE [None]
